FAERS Safety Report 10387684 (Version 1)
Quarter: 2014Q3

REPORT INFORMATION
  Report Type: Spontaneous
  Country: US (occurrence: None)
  Receive Date: 20140814
  Receipt Date: 20140814
  Transmission Date: 20150326
  Serious: Yes (Hospitalization)
  Sender: FDA-Public Use
  Company Number: None

PATIENT
  Age: 27 Year
  Sex: Female
  Weight: 77.11 kg

DRUGS (2)
  1. ALEVE [Suspect]
     Active Substance: NAPROXEN SODIUM
     Indication: PERIPHERAL SWELLING
     Dosage: 2 PILLS (FIRST DOSE) ONCE TAKEN BY MOUTH
     Route: 048
     Dates: start: 20140811, end: 20140811
  2. ALEVE [Suspect]
     Active Substance: NAPROXEN SODIUM
     Indication: LIGAMENT SPRAIN
     Dosage: 2 PILLS (FIRST DOSE) ONCE TAKEN BY MOUTH
     Route: 048
     Dates: start: 20140811, end: 20140811

REACTIONS (3)
  - Dyspnoea [None]
  - Chest pain [None]
  - Back pain [None]

NARRATIVE: CASE EVENT DATE: 20140811
